FAERS Safety Report 21918639 (Version 1)
Quarter: 2023Q1

REPORT INFORMATION
  Report Type: Report from Study
  Country: GB (occurrence: None)
  Receive Date: 20230127
  Receipt Date: 20230127
  Transmission Date: 20230417
  Serious: Yes (Hospitalization, Other)
  Sender: FDA-Public Use
  Company Number: GB-Merck Healthcare KGaA-9378360

PATIENT
  Sex: Female

DRUGS (1)
  1. REBIF [Suspect]
     Active Substance: INTERFERON BETA-1A
     Indication: Multiple sclerosis
     Dosage: FORMULATION: CARTRIDGES
     Route: 058
     Dates: start: 20070531

REACTIONS (5)
  - Pericardial effusion [Unknown]
  - Pulmonary oedema [Unknown]
  - Pneumonia [Unknown]
  - Cardiac infection [Unknown]
  - Product dose omission in error [Unknown]
